FAERS Safety Report 7297504-3 (Version None)
Quarter: 2011Q1

REPORT INFORMATION
  Report Type: 
  Country: None (occurrence: None)
  Receive Date: 20110216
  Receipt Date: 20110211
  Transmission Date: 20110831
  Serious: Yes (Hospitalization)
  Sender: FDA-Public Use
  Company Number: CA-PFIZER INC-2011031379

PATIENT
  Age: 33 Year
  Sex: Female

DRUGS (1)
  1. CELEBREX [Suspect]
     Indication: ARTHRITIS
     Dosage: 200 MG, AS NEEDED
     Route: 048
     Dates: start: 20110208

REACTIONS (4)
  - MUSCULAR WEAKNESS [None]
  - DYSARTHRIA [None]
  - MONOPLEGIA [None]
  - VISUAL IMPAIRMENT [None]
